FAERS Safety Report 24437361 (Version 1)
Quarter: 2024Q4

REPORT INFORMATION
  Report Type: Spontaneous
  Country: US (occurrence: US)
  Receive Date: 20241015
  Receipt Date: 20241015
  Transmission Date: 20250115
  Serious: No
  Sender: BAYER HEALTHCARE LLC
  Company Number: US-BAYER-2024A144893

PATIENT
  Age: 64 Year
  Sex: Female

DRUGS (2)
  1. ASTEPRO [Suspect]
     Active Substance: AZELASTINE HYDROCHLORIDE
     Indication: Nasal congestion
     Dosage: 2 SPRAYS EACH NOSTRIL
     Route: 045
     Dates: start: 20241009, end: 20241010
  2. ASTEPRO [Suspect]
     Active Substance: AZELASTINE HYDROCHLORIDE
     Indication: Ear discomfort

REACTIONS (2)
  - Dizziness [Recovered/Resolved]
  - Off label use [None]

NARRATIVE: CASE EVENT DATE: 20241009
